FAERS Safety Report 17349986 (Version 3)
Quarter: 2020Q3

REPORT INFORMATION
  Report Type: Report from Study
  Country: None (occurrence: US)
  Receive Date: 20200130
  Receipt Date: 20200717
  Transmission Date: 20201102
  Serious: No
  Sender: FDA-Public Use
  Company Number: US-ABBVIE-20K-163-3247037-00

PATIENT
  Sex: Female
  Weight: 96.25 kg

DRUGS (1)
  1. VENCLEXTA [Suspect]
     Active Substance: VENETOCLAX
     Indication: NON-HODGKIN^S LYMPHOMA
     Route: 048
     Dates: start: 2018

REACTIONS (4)
  - Off label use [Unknown]
  - Asthenia [Unknown]
  - Medication error [Unknown]
  - Diarrhoea [Unknown]
